FAERS Safety Report 4749764-8 (Version None)
Quarter: 2005Q3

REPORT INFORMATION
  Report Type: 
  Country: None (occurrence: None)
  Receive Date: 20050822
  Receipt Date: 20050531
  Transmission Date: 20060218
  Serious: Yes (Hospitalization, Other)
  Sender: FDA-Public Use
  Company Number: PHBS2005JP07640

PATIENT
  Age: 44 Year
  Sex: Male

DRUGS (11)
  1. AMARYL [Suspect]
     Indication: DIABETES MELLITUS
     Dosage: UNK, QD
     Route: 048
     Dates: start: 20050511
  2. AMARYL [Suspect]
     Dosage: UNK, QD
     Route: 048
     Dates: start: 20050520, end: 20050617
  3. STARSIS [Suspect]
     Indication: DIABETES MELLITUS
     Dosage: UNK, TID
     Route: 048
     Dates: start: 20050511, end: 20050518
  4. STARSIS [Suspect]
     Route: 048
     Dates: start: 20050520, end: 20050522
  5. FLOMOX [Concomitant]
     Indication: CELLULITIS
     Dosage: UNK, TID
     Dates: start: 20050429, end: 20050501
  6. LOXONIN [Concomitant]
     Indication: CELLULITIS
     Dosage: UNK, TID
     Dates: start: 20050429, end: 20050501
  7. PANSPORIN [Concomitant]
     Indication: CELLULITIS
     Dosage: 1 G, UNK
     Dates: start: 20050502, end: 20050509
  8. CRAVIT [Concomitant]
     Indication: CELLULITIS
     Dosage: UNK, TID
     Dates: start: 20050511, end: 20050514
  9. GENTACIN [Concomitant]
     Indication: CELLULITIS
     Dosage: 1 G, UNK
     Dates: start: 20050514, end: 20050515
  10. GENTACIN [Concomitant]
     Dosage: 1 G, UNK
     Dates: start: 20050519, end: 20050521
  11. DEPAS [Concomitant]
     Indication: INSOMNIA
     Dosage: UNK, QD
     Dates: start: 20050519

REACTIONS (6)
  - ABDOMINAL DISCOMFORT [None]
  - CARDIAC FAILURE [None]
  - CHEST PAIN [None]
  - CORONARY ARTERY DISEASE [None]
  - DYSPNOEA [None]
  - PLEURAL EFFUSION [None]
